FAERS Safety Report 12175059 (Version 6)
Quarter: 2016Q2

REPORT INFORMATION
  Report Type: Report from Study
  Country: JP (occurrence: JP)
  Receive Date: 20160314
  Receipt Date: 20160414
  Transmission Date: 20160815
  Serious: Yes (Hospitalization)
  Sender: FDA-Public Use
  Company Number: JP-EISAI MEDICAL RESEARCH-EC-2016-015168

PATIENT
  Age: 69 Year
  Sex: Female
  Weight: 38 kg

DRUGS (12)
  1. NEXIUM [Concomitant]
     Active Substance: ESOMEPRAZOLE MAGNESIUM
  2. REBAMIPIDE [Concomitant]
     Active Substance: REBAMIPIDE
  3. OXINORM [Concomitant]
     Active Substance: OXYCODONE HYDROCHLORIDE
  4. PASTARON [Concomitant]
     Active Substance: UREA
  5. FUROSEMIDE. [Concomitant]
     Active Substance: FUROSEMIDE
  6. SENNOSIDE [Concomitant]
     Active Substance: SENNOSIDES
  7. FERROUS SULFATE. [Concomitant]
     Active Substance: FERROUS SULFATE
  8. LENVATINIB [Suspect]
     Active Substance: LENVATINIB
     Indication: BILE DUCT CANCER
     Route: 048
     Dates: start: 20160301, end: 20160308
  9. LOXOPROFEN [Concomitant]
     Active Substance: LOXOPROFEN
     Indication: CANCER PAIN
     Route: 048
     Dates: start: 20160223, end: 20160309
  10. OXYCONTIN [Concomitant]
     Active Substance: OXYCODONE HYDROCHLORIDE
  11. ALDACTONE A [Concomitant]
     Active Substance: SPIRONOLACTONE
  12. LENVATINIB [Suspect]
     Active Substance: LENVATINIB
     Route: 048
     Dates: start: 20160328, end: 20160331

REACTIONS (1)
  - Gastrointestinal haemorrhage [Recovered/Resolved]

NARRATIVE: CASE EVENT DATE: 20160308
